FAERS Safety Report 24573509 (Version 1)
Quarter: 2024Q4

REPORT INFORMATION
  Report Type: Spontaneous
  Country: FR (occurrence: FR)
  Receive Date: 20241102
  Receipt Date: 20241102
  Transmission Date: 20250115
  Serious: Yes (Other)
  Sender: AUROBINDO
  Company Number: FR-AFSSAPS-NT2024001323

PATIENT
  Age: 55 Year
  Sex: Female

DRUGS (1)
  1. ACETAMINOPHEN [Suspect]
     Active Substance: ACETAMINOPHEN
     Indication: Product used for unknown indication
     Dosage: UNK ( NR)
     Route: 065
     Dates: start: 202312

REACTIONS (1)
  - Thrombocytopenic purpura [Recovering/Resolving]

NARRATIVE: CASE EVENT DATE: 20220709
